FAERS Safety Report 16815909 (Version 1)
Quarter: 2019Q3

REPORT INFORMATION
  Report Type: Spontaneous
  Country: US (occurrence: US)
  Receive Date: 20190917
  Receipt Date: 20190917
  Transmission Date: 20191005
  Serious: No
  Sender: FDA-Public Use
  Company Number: US-BION-008044

PATIENT
  Sex: Female
  Weight: 71.36 kg

DRUGS (4)
  1. METISON [Concomitant]
     Indication: DIABETES MELLITUS
  2. ATENOLOL/ATENOLOL HYDROCHLORIDE [Concomitant]
     Indication: HYPERTENSION
     Dosage: 12.5 MG
  3. ZYRTEC [Suspect]
     Active Substance: CETIRIZINE HYDROCHLORIDE
     Indication: LOCAL REACTION
     Route: 048
  4. AMLODIPINE [Concomitant]
     Active Substance: AMLODIPINE BESYLATE
     Indication: HYPERTENSION
     Dosage: 5 MG

REACTIONS (1)
  - Drug effective for unapproved indication [Not Recovered/Not Resolved]
